FAERS Safety Report 24342400 (Version 1)
Quarter: 2024Q3

REPORT INFORMATION
  Report Type: Spontaneous
  Country: ES (occurrence: ES)
  Receive Date: 20240920
  Receipt Date: 20240920
  Transmission Date: 20241017
  Serious: Yes (Hospitalization, Other)
  Sender: CIPLA
  Company Number: ES-CHEPLA-2024008381

PATIENT

DRUGS (11)
  1. VALGANCICLOVIR [Suspect]
     Active Substance: VALGANCICLOVIR
     Indication: Antiviral prophylaxis
     Dosage: 2 DOSAGE FORM, QD (450 MG / 2 TABLETS / DAY)
     Route: 065
  2. VALGANCICLOVIR [Suspect]
     Active Substance: VALGANCICLOVIR
     Dosage: 900 MILLIGRAM, BID (ORAL VALGANCICLOVIR 900 MG/12 H FOR 18 DAYS TO CONTROL CMV VIREMIA)
     Route: 048
  3. GANCICLOVIR [Suspect]
     Active Substance: GANCICLOVIR
     Indication: Cytomegalovirus infection
     Dosage: 50 MG/KG/ 12 HOUR, BID
     Route: 065
  4. PYLERA [Concomitant]
     Active Substance: BISMUTH SUBCITRATE POTASSIUM\METRONIDAZOLE\TETRACYCLINE HYDROCHLORIDE
     Indication: Helicobacter infection
     Dosage: 3 DOSAGE FORM, QID (3 CAPSULES EVERY 6 HOURS)
     Route: 065
  5. FIDAXOMICIN [Concomitant]
     Active Substance: FIDAXOMICIN
     Indication: Product used for unknown indication
     Dosage: 200 MILLIGRAM, BID (200 MG / 12 HOURS FOR 5 DAYS)
     Route: 065
  6. FIDAXOMICIN [Concomitant]
     Active Substance: FIDAXOMICIN
     Dosage: 200 MILLIGRAM, QOD (200 MG / 48 HOURS FOR 20 DAYS)
     Route: 065
  7. CEFTRIAXONE [Concomitant]
     Active Substance: CEFTRIAXONE\CEFTRIAXONE SODIUM
     Indication: Klebsiella infection
     Dosage: 2 GRAM
     Route: 042
  8. DELAFLOXACIN [Concomitant]
     Active Substance: DELAFLOXACIN
     Indication: Campylobacter infection
     Dosage: UNK
     Route: 065
  9. BEZLOTOXUMAB [Concomitant]
     Active Substance: BEZLOTOXUMAB
     Indication: Product used for unknown indication
     Dosage: 650 MILLIGRAM, SINGLE DOSE
     Route: 042
  10. AVIBACTAM SODIUM\CEFTAZIDIME [Concomitant]
     Active Substance: AVIBACTAM SODIUM\CEFTAZIDIME
     Indication: Klebsiella infection
     Dosage: UNK
     Route: 065
  11. PREDNISONE [Concomitant]
     Active Substance: PREDNISONE
     Indication: Autoimmune haemolytic anaemia
     Dosage: 100 MILLIGRAM, QD
     Route: 048

REACTIONS (5)
  - Adenocarcinoma gastric [Recovered/Resolved]
  - Cytomegalovirus viraemia [Recovering/Resolving]
  - Cytomegalovirus gastrointestinal infection [Unknown]
  - Neutrophilia [Unknown]
  - Drug ineffective [Unknown]

NARRATIVE: CASE EVENT DATE: 20221201
